APPROVED DRUG PRODUCT: LAMIVUDINE
Active Ingredient: LAMIVUDINE
Strength: 300MG
Dosage Form/Route: TABLET;ORAL
Application: A202032 | Product #002
Applicant: AUROBINDO PHARMA LTD
Approved: Nov 17, 2011 | RLD: No | RS: No | Type: DISCN